FAERS Safety Report 5126880-2 (Version None)
Quarter: 2006Q4

REPORT INFORMATION
  Report Type: 
  Country: None (occurrence: None)
  Receive Date: 20061013
  Receipt Date: 20050224
  Transmission Date: 20070319
  Serious: Yes (Hospitalization, Disabling)
  Sender: FDA-Public Use
  Company Number: US-ROCHE-396709

PATIENT
  Age: 19 Year
  Sex: Female
  Weight: 54.4 kg

DRUGS (2)
  1. ACCUTANE [Suspect]
     Indication: ACNE
     Route: 048
     Dates: start: 19990730, end: 19990915
  2. ACCUTANE [Suspect]
     Route: 048
     Dates: start: 19991029, end: 20000526

REACTIONS (52)
  - ABDOMINAL INJURY [None]
  - ABORTION SPONTANEOUS [None]
  - ACNE [None]
  - ANAEMIA [None]
  - ANHEDONIA [None]
  - ANXIETY [None]
  - BILIARY DILATATION [None]
  - CALCINOSIS [None]
  - COLITIS [None]
  - COLITIS ULCERATIVE [None]
  - COLONIC POLYP [None]
  - CONDITION AGGRAVATED [None]
  - COSTOCHONDRITIS [None]
  - CROHN'S DISEASE [None]
  - DRUG EXPOSURE DURING PREGNANCY [None]
  - DRUG HYPERSENSITIVITY [None]
  - DRUG INEFFECTIVE [None]
  - DRY SKIN [None]
  - EATING DISORDER [None]
  - FATIGUE [None]
  - GASTROENTERITIS [None]
  - GASTROINTESTINAL DISORDER [None]
  - GASTROINTESTINAL STOMA COMPLICATION [None]
  - HAEMORRHAGIC CYST [None]
  - IMPAIRED WORK ABILITY [None]
  - INFLAMMATORY BOWEL DISEASE [None]
  - INTESTINAL HAEMORRHAGE [None]
  - INTESTINAL OBSTRUCTION [None]
  - LIP DRY [None]
  - MAJOR DEPRESSION [None]
  - MOOD ALTERED [None]
  - MULTI-ORGAN DISORDER [None]
  - NEPHROLITHIASIS [None]
  - OBSESSIVE-COMPULSIVE DISORDER [None]
  - OVARIAN CYST [None]
  - POOR QUALITY SLEEP [None]
  - POUCHITIS [None]
  - PREGNANCY [None]
  - PROCTITIS [None]
  - RASH [None]
  - RECTAL ABSCESS [None]
  - RECTAL HAEMORRHAGE [None]
  - RENAL DISORDER [None]
  - SCAR [None]
  - SELF ESTEEM DECREASED [None]
  - SELF-INDUCED VOMITING [None]
  - SPLENIC CYST [None]
  - TREATMENT NONCOMPLIANCE [None]
  - URINE OUTPUT DECREASED [None]
  - VICTIM OF ABUSE [None]
  - WEIGHT DECREASED [None]
  - WHITE BLOOD CELL COUNT DECREASED [None]
